FAERS Safety Report 12701692 (Version 1)
Quarter: 2016Q3

REPORT INFORMATION
  Report Type: Spontaneous
  Country: DE (occurrence: DE)
  Receive Date: 20160831
  Receipt Date: 20160831
  Transmission Date: 20161109
  Serious: Yes (Other)
  Sender: FDA-Public Use
  Company Number: DE-ACCORD-043540

PATIENT
  Sex: Male

DRUGS (1)
  1. TRAMADOL/TRAMADOL HYDROCHLORIDE [Suspect]
     Active Substance: TRAMADOL HYDROCHLORIDE
     Indication: BACK PAIN
     Dosage: INCREASED USUAL DAILY TRAMADOL DOSAGE OF 450 MG (SOLUTION) WHICH HE HAD BEEN TAKING FOR MANY MONTHS

REACTIONS (4)
  - Generalised tonic-clonic seizure [Unknown]
  - Intentional product misuse [Unknown]
  - Loss of consciousness [None]
  - Overdose [Unknown]
